FAERS Safety Report 18537344 (Version 2)
Quarter: 2022Q1

REPORT INFORMATION
  Report Type: Spontaneous
  Country: NL (occurrence: NL)
  Receive Date: 20201124
  Receipt Date: 20220224
  Transmission Date: 20220423
  Serious: Yes (Hospitalization, Other)
  Sender: FDA-Public Use
  Company Number: NL-LRB-00420018

PATIENT
  Age: 84 Year
  Sex: Female
  Weight: 63 kg

DRUGS (8)
  1. AMIODARONE HYDROCHLORIDE [Suspect]
     Active Substance: AMIODARONE HYDROCHLORIDE
     Indication: Atrial flutter
     Dosage: 200 MILLIGRAM, ONCE A DAY
     Route: 065
  2. AMIODARONE HYDROCHLORIDE [Suspect]
     Active Substance: AMIODARONE HYDROCHLORIDE
     Dosage: 200 MILLIGRAM, 3 TIMES A DAY
     Route: 065
     Dates: start: 20200528, end: 20201021
  3. FUROSEMIDE [Concomitant]
     Active Substance: FUROSEMIDE
     Indication: Product used for unknown indication
     Dosage: UNK
     Route: 065
  4. METOPROLOL SUCCINATE [Concomitant]
     Active Substance: METOPROLOL SUCCINATE
     Indication: Product used for unknown indication
     Dosage: UNK
     Route: 065
  5. PANTOPRAZOLE [Concomitant]
     Active Substance: PANTOPRAZOLE
     Indication: Product used for unknown indication
     Dosage: UNK
     Route: 065
  6. SPIRONOLACTONE [Concomitant]
     Active Substance: SPIRONOLACTONE
     Indication: Product used for unknown indication
     Dosage: UNK
     Route: 065
  7. XARELTO [Concomitant]
     Active Substance: RIVAROXABAN
     Indication: Product used for unknown indication
     Dosage: UNK
     Route: 065
  8. VIDISIC CARBOGEL [Concomitant]
     Indication: Product used for unknown indication
     Dosage: 2 MILLIGRAM PER GRAM
     Route: 065

REACTIONS (4)
  - Blindness [Not Recovered/Not Resolved]
  - Lacrimation increased [Unknown]
  - Dry eye [Unknown]
  - Vision blurred [Unknown]

NARRATIVE: CASE EVENT DATE: 20200630
